FAERS Safety Report 8260853-6 (Version None)
Quarter: 2012Q2

REPORT INFORMATION
  Report Type: 
  Country: None (occurrence: None)
  Receive Date: 20120402
  Receipt Date: 20120323
  Transmission Date: 20120825
  Serious: Yes (Hospitalization)
  Sender: FDA-Public Use
  Company Number: 2012SP016452

PATIENT
  Age: 68 Year
  Sex: Male
  Weight: 80.6042 kg

DRUGS (1)
  1. VICTRELIS [Suspect]
     Indication: HEPATITIS C
     Dosage: 600 MG, TID, PO
     Route: 048
     Dates: start: 20111128, end: 20120221

REACTIONS (3)
  - NEUTROPENIA [None]
  - ANGINA PECTORIS [None]
  - ANAEMIA [None]
